FAERS Safety Report 10169910 (Version 2)
Quarter: 2014Q2

REPORT INFORMATION
  Report Type: Spontaneous
  Country: IE (occurrence: IE)
  Receive Date: 20140513
  Receipt Date: 20140513
  Transmission Date: 20141212
  Serious: Yes (Other)
  Sender: FDA-Public Use
  Company Number: PHHY2014IE031935

PATIENT
  Age: 78 Year
  Sex: Female

DRUGS (16)
  1. ULTIBRO BREEZHALER [Suspect]
     Indication: CHRONIC OBSTRUCTIVE PULMONARY DISEASE
     Dosage: 1 DF, QD
     Route: 055
     Dates: start: 20140226
  2. NU-SEALS [Concomitant]
     Dosage: 75 MG, QD
  3. NITROLINGUAL [Concomitant]
     Dosage: 400 MG, QD
  4. AZILECT [Concomitant]
     Dosage: 1 MG, QD
  5. BISOPROLOL [Concomitant]
     Dosage: 5 MG, QD
  6. CYCLIZINE [Concomitant]
     Dosage: 1 DF, BID
  7. BONVIVA [Concomitant]
     Dosage: 150 MG, QD
  8. ARCOXIA [Concomitant]
     Dosage: 60 MG, QD
  9. AMITRIPTYLENE [Concomitant]
     Dosage: 25 MG, QD
  10. CALTRATE [Concomitant]
     Dosage: 2 DF, QD
  11. SOLPADEIN [Concomitant]
     Dosage: 4 DF, QD
  12. ZOTON [Concomitant]
     Dosage: 30 MG, QD
  13. ENSURE PLUS [Concomitant]
     Dosage: UNK UNK,
  14. SINEMET PLUS [Concomitant]
     Dosage: 1 DF, QD
  15. BUTRANS//BUPRENORPHINE [Concomitant]
     Dosage: 2 DF, QD
  16. SINEMET-CR [Concomitant]
     Dosage: 1 DF, QD

REACTIONS (2)
  - Dyskinesia [Recovered/Resolved]
  - Hypotonia [Recovered/Resolved]
